FAERS Safety Report 5889624-2 (Version None)
Quarter: 2008Q3

REPORT INFORMATION
  Report Type: 
  Country: None (occurrence: None)
  Receive Date: 20080919
  Receipt Date: 20080916
  Transmission Date: 20090109
  Serious: Yes (Hospitalization)
  Sender: FDA-Public Use
  Company Number: B0536469A

PATIENT
  Age: 61 Year
  Sex: Male

DRUGS (7)
  1. MODACIN [Suspect]
     Indication: CHOLANGITIS
     Dosage: 1G TWICE PER DAY
     Route: 042
     Dates: start: 20080813, end: 20080814
  2. MODACIN [Suspect]
     Dosage: 1G TWICE PER DAY
     Route: 065
     Dates: start: 20080818, end: 20080821
  3. FUTHAN [Suspect]
     Indication: PANCREATITIS
     Dosage: 120MG PER DAY
     Route: 042
     Dates: start: 20080813, end: 20080814
  4. FUTHAN [Suspect]
     Dosage: 120MG PER DAY
     Route: 042
     Dates: start: 20080818, end: 20080821
  5. TAGAMET [Suspect]
     Indication: GASTRIC ULCER
     Dosage: 200MG TWICE PER DAY
     Route: 065
     Dates: start: 20080813, end: 20080814
  6. TAGAMET [Suspect]
     Dosage: 200MG TWICE PER DAY
     Route: 065
     Dates: start: 20080818, end: 20080821
  7. THROMBIN LOCAL SOLUTION [Suspect]
     Indication: DRUG USE FOR UNKNOWN INDICATION
     Dosage: 20IU3 PER DAY
     Route: 065
     Dates: start: 20080820, end: 20080820

REACTIONS (6)
  - ALANINE AMINOTRANSFERASE INCREASED [None]
  - ASPARTATE AMINOTRANSFERASE INCREASED [None]
  - BLOOD ALKALINE PHOSPHATASE INCREASED [None]
  - BLOOD BILIRUBIN INCREASED [None]
  - GAMMA-GLUTAMYLTRANSFERASE INCREASED [None]
  - HEPATIC FUNCTION ABNORMAL [None]
